FAERS Safety Report 16531847 (Version 1)
Quarter: 2019Q3

REPORT INFORMATION
  Report Type: Spontaneous
  Country: DE (occurrence: DE)
  Receive Date: 20190705
  Receipt Date: 20190705
  Transmission Date: 20191004
  Serious: Yes (Death, Other)
  Sender: FDA-Public Use
  Company Number: DE-ASTRAZENECA-2019SE96541

PATIENT
  Age: 61 Year

DRUGS (10)
  1. TORASEMIDE [Suspect]
     Active Substance: TORSEMIDE
     Route: 065
  2. SALMETEROL XINAFOATE [Suspect]
     Active Substance: SALMETEROL XINAFOATE
     Route: 065
  3. OMEPRAZOLE. [Suspect]
     Active Substance: OMEPRAZOLE
     Route: 048
  4. AUBAGIO [Suspect]
     Active Substance: TERIFLUNOMIDE
     Indication: RELAPSING-REMITTING MULTIPLE SCLEROSIS
     Route: 065
  5. METAMIZOLE [Suspect]
     Active Substance: METAMIZOLE
     Route: 065
  6. TIOTROPIUM [Suspect]
     Active Substance: TIOTROPIUM
     Route: 065
  7. PREDNISOLONE. [Suspect]
     Active Substance: PREDNISOLONE
     Route: 065
  8. FLUTICASONE. [Suspect]
     Active Substance: FLUTICASONE
     Route: 065
  9. METOPROLOL. [Suspect]
     Active Substance: METOPROLOL
     Route: 048
  10. PHENPROCOUMON [Suspect]
     Active Substance: PHENPROCOUMON
     Route: 065

REACTIONS (1)
  - Bronchopulmonary aspergillosis [Fatal]
